FAERS Safety Report 8395060-X (Version None)
Quarter: 2012Q2

REPORT INFORMATION
  Report Type: 
  Country: None (occurrence: None)
  Receive Date: 20120530
  Receipt Date: 20120521
  Transmission Date: 20120825
  Serious: Yes (Other)
  Sender: FDA-Public Use
  Company Number: US-ASTRAZENECA-2012SE32504

PATIENT
  Age: 67 Year
  Sex: Male
  Weight: 77.1 kg

DRUGS (6)
  1. ENALAPRIL MALEATE [Concomitant]
     Indication: DIABETES MELLITUS
  2. NEXIUM [Suspect]
     Indication: GASTROOESOPHAGEAL REFLUX DISEASE
     Route: 048
     Dates: start: 20100101
  3. JANUMET [Concomitant]
     Indication: DIABETES MELLITUS
  4. LOVASTATIN [Concomitant]
     Indication: BLOOD CHOLESTEROL ABNORMAL
  5. OMEPRAZOLE [Suspect]
     Indication: GASTROOESOPHAGEAL REFLUX DISEASE
     Route: 048
     Dates: end: 20101101
  6. MIRALAX [Concomitant]
     Indication: BOWEL MOVEMENT IRREGULARITY
     Dates: start: 20110101

REACTIONS (5)
  - CHOLECYSTITIS INFECTIVE [None]
  - EROSIVE OESOPHAGITIS [None]
  - DRUG EFFECT DECREASED [None]
  - OESOPHAGEAL ULCER [None]
  - ABDOMINAL DISCOMFORT [None]
